FAERS Safety Report 10197369 (Version 1)
Quarter: 2014Q2

REPORT INFORMATION
  Report Type: Spontaneous
  Country: US (occurrence: US)
  Receive Date: 20140527
  Receipt Date: 20140527
  Transmission Date: 20141212
  Serious: No
  Sender: FDA-Public Use
  Company Number: US-TEVA-483196USA

PATIENT
  Age: 41 Year
  Sex: Female

DRUGS (1)
  1. NUVIGIL [Suspect]
     Dates: start: 2013

REACTIONS (1)
  - Peripheral swelling [Recovered/Resolved]
